FAERS Safety Report 16089381 (Version 1)
Quarter: 2019Q1

REPORT INFORMATION
  Report Type: Spontaneous
  Country: US (occurrence: US)
  Receive Date: 20190129
  Receipt Date: 20190129
  Transmission Date: 20190418
  Serious: Yes (Other)
  Sender: FDA-Public Use
  Company Number: None

PATIENT
  Age: 73 Year
  Sex: Female

DRUGS (1)
  1. BUPIVICAINE 0.75% IN DEXTROSE 8.25% SPINAL AMPULE, SEEABOVE ML [Suspect]
     Active Substance: BUPIVACAINE\DEXTROSE
     Indication: KNEE ARTHROPLASTY
     Route: 008
     Dates: start: 20190125, end: 20190125

REACTIONS (1)
  - Drug ineffective [None]

NARRATIVE: CASE EVENT DATE: 20190125
